FAERS Safety Report 7229197 (Version 4)
Quarter: 2015Q4

REPORT INFORMATION
  Report Type: Spontaneous
  Country: PL (occurrence: PL)
  Receive Date: 20091223
  Receipt Date: 20151025
  Transmission Date: 20160305
  Serious: Yes (Death, Other)
  Sender: FDA-Public Use
  Company Number: PL-BRISTOL-MYERS SQUIBB COMPANY-14904296

PATIENT
  Age: 0 Day

DRUGS (3)
  1. REYATAZ [Suspect]
     Active Substance: ATAZANAVIR SULFATE
     Indication: PRODUCT USED FOR UNKNOWN INDICATION
     Dosage: 150 MG, BID
     Route: 064
     Dates: start: 20080728, end: 20091201
  2. TRUVADA [Suspect]
     Active Substance: EMTRICITABINE\TENOFOVIR DISOPROXIL FUMARATE
     Indication: PRODUCT USED FOR UNKNOWN INDICATION
     Dosage: UNK
     Route: 064
     Dates: start: 20080728, end: 20091201
  3. NORVIR [Suspect]
     Active Substance: RITONAVIR
     Indication: PRODUCT USED FOR UNKNOWN INDICATION
     Dosage: 100 MG, UNK
     Route: 064
     Dates: start: 20080728, end: 20091201

REACTIONS (6)
  - Foetal exposure during pregnancy [Unknown]
  - Pneumonia [Fatal]
  - Respiratory failure [Fatal]
  - Premature baby [Unknown]
  - Central nervous system haemorrhage [Fatal]
  - Pneumothorax [Fatal]

NARRATIVE: CASE EVENT DATE: 20091201
